FAERS Safety Report 20361107 (Version 1)
Quarter: 2022Q1

REPORT INFORMATION
  Report Type: Spontaneous
  Country: US (occurrence: US)
  Receive Date: 20220121
  Receipt Date: 20220121
  Transmission Date: 20220424
  Serious: No
  Sender: FDA-Public Use
  Company Number: US-CIPLA LTD.-2021US06939

PATIENT

DRUGS (4)
  1. ALBUTEROL [Suspect]
     Active Substance: ALBUTEROL
     Indication: Dyspnoea
     Dosage: UNK
     Route: 065
     Dates: start: 2019
  2. ALBUTEROL [Suspect]
     Active Substance: ALBUTEROL
     Indication: Asthma
  3. ASPIRIN [Concomitant]
     Active Substance: ASPIRIN
     Indication: Product used for unknown indication
     Dosage: UNK, QD
     Route: 065
  4. PRAVASTATIN [Concomitant]
     Active Substance: PRAVASTATIN
     Indication: Blood cholesterol increased
     Dosage: UNK, QD
     Route: 065

REACTIONS (3)
  - Therapeutic response decreased [Recovered/Resolved]
  - Device delivery system issue [Unknown]
  - Device malfunction [Unknown]

NARRATIVE: CASE EVENT DATE: 20210901
